FAERS Safety Report 7167745-4 (Version None)
Quarter: 2010Q4

REPORT INFORMATION
  Report Type: 
  Country: None (occurrence: None)
  Receive Date: 20101216
  Receipt Date: 20100927
  Transmission Date: 20110411
  Serious: No
  Sender: FDA-Public Use
  Company Number: A0883483A

PATIENT
  Age: 67 Year
  Sex: Female

DRUGS (2)
  1. NICORETTE [Suspect]
     Indication: SMOKING CESSATION THERAPY
  2. NICORETTE [Suspect]
     Indication: SMOKING CESSATION THERAPY

REACTIONS (4)
  - DYSGEUSIA [None]
  - GASTRIC DISORDER [None]
  - INTENTIONAL DRUG MISUSE [None]
  - MIGRAINE [None]
